FAERS Safety Report 8266775-9 (Version None)
Quarter: 2012Q2

REPORT INFORMATION
  Report Type: 
  Country: None (occurrence: None)
  Receive Date: 20120409
  Receipt Date: 20120328
  Transmission Date: 20120825
  Serious: No
  Sender: FDA-Public Use
  Company Number: US-BIOGENIDEC-2012BI010999

PATIENT
  Sex: Female

DRUGS (3)
  1. TYSABRI [Suspect]
     Indication: MULTIPLE SCLEROSIS
     Route: 042
     Dates: start: 20070426, end: 20080708
  2. TYSABRI [Suspect]
     Route: 042
     Dates: start: 20091019
  3. AVONEX [Concomitant]
     Indication: MULTIPLE SCLEROSIS
     Route: 030

REACTIONS (5)
  - VEIN DISORDER [None]
  - SKIN DISCOLOURATION [None]
  - CATHETER SITE PAIN [None]
  - DEVICE ISSUE [None]
  - POOR VENOUS ACCESS [None]
